FAERS Safety Report 7798166-9 (Version None)
Quarter: 2011Q4

REPORT INFORMATION
  Report Type: 
  Country: None (occurrence: None)
  Receive Date: 20111005
  Receipt Date: 20110929
  Transmission Date: 20120403
  Serious: Yes (Death, Hospitalization)
  Sender: FDA-Public Use
  Company Number: US-ACTELION-A-NJ2011-54601

PATIENT

DRUGS (1)
  1. EPOPROSTENOL SODIUM [Suspect]
     Indication: PULMONARY ARTERIAL HYPERTENSION
     Dosage: 12 NG/KG, PER MIN
     Route: 041
     Dates: start: 20101015, end: 20110901

REACTIONS (5)
  - DYSPNOEA [None]
  - FLUID OVERLOAD [None]
  - CONDITION AGGRAVATED [None]
  - OEDEMA [None]
  - PULMONARY ARTERIAL HYPERTENSION [None]
